FAERS Safety Report 9056663 (Version 3)
Quarter: 2013Q1

REPORT INFORMATION
  Report Type: Report from Study
  Country: DE (occurrence: DE)
  Receive Date: 20130204
  Receipt Date: 20130315
  Transmission Date: 20140127
  Serious: Yes (Hospitalization)
  Sender: FDA-Public Use
  Company Number: DE-PFIZER INC-2013030368

PATIENT
  Age: 73 Year
  Sex: 0

DRUGS (2)
  1. TEMSIROLIMUS [Suspect]
     Dosage: 75 MG, WEEKLY
     Route: 042
     Dates: start: 20111117, end: 20120105
  2. BISOPROLOL FUMARATE [Concomitant]
     Dosage: 2.5 MG, UNK

REACTIONS (2)
  - Pneumonitis [Recovered/Resolved]
  - Pneumonia [Recovered/Resolved]
